FAERS Safety Report 8120180-4 (Version None)
Quarter: 2012Q1

REPORT INFORMATION
  Report Type: 
  Country: None (occurrence: None)
  Receive Date: 20120207
  Receipt Date: 20120130
  Transmission Date: 20120608
  Serious: Yes (Hospitalization, Other)
  Sender: FDA-Public Use
  Company Number: US-BAYER-2011-049587

PATIENT
  Age: 17 Year
  Sex: Female
  Weight: 97.506 kg

DRUGS (9)
  1. YASMIN [Suspect]
     Indication: CONTRACEPTION
     Dosage: UNK
     Dates: start: 20080507, end: 20080605
  2. YASMIN [Suspect]
     Indication: ACNE
  3. SULFAMETHOXAZOLE AND TRIMETHOPRIM [Concomitant]
     Dosage: UNK
     Dates: start: 20090714
  4. DROSPIRENONE AND ETHINYL ESTRADIOL [Suspect]
     Indication: CONTRACEPTION
     Dosage: UNK UNK, QD
     Dates: start: 20080706, end: 20090607
  5. SEASONALE [Concomitant]
     Dosage: UNK UNK, QD
  6. RECLIPSEN [Concomitant]
     Dosage: UNK
     Dates: start: 20111101
  7. DROSPIRENONE AND ETHINYL ESTRADIOL [Suspect]
     Indication: ACNE
  8. AZITHROMYCIN [Concomitant]
     Dosage: UNK
     Dates: start: 20090717
  9. LEVONORGESTREL + ETHINYL ESTRADIOL [Concomitant]
     Dosage: UNK
     Dates: start: 20090601, end: 20090801

REACTIONS (10)
  - ANXIETY [None]
  - EATING DISORDER [None]
  - EMOTIONAL DISTRESS [None]
  - GENERAL PHYSICAL HEALTH DETERIORATION [None]
  - ABDOMINAL PAIN UPPER [None]
  - PAIN [None]
  - CHOLECYSTITIS CHRONIC [None]
  - GALLBLADDER DISORDER [None]
  - BACK PAIN [None]
  - INJURY [None]
